FAERS Safety Report 23076655 (Version 2)
Quarter: 2023Q4

REPORT INFORMATION
  Report Type: Report from Study
  Country: MX (occurrence: MX)
  Receive Date: 20231017
  Receipt Date: 20231019
  Transmission Date: 20240109
  Serious: Yes (Hospitalization)
  Sender: FDA-Public Use
  Company Number: MX-ABBVIE-5179738

PATIENT
  Sex: Female
  Weight: 60 kg

DRUGS (3)
  1. HUMIRA [Suspect]
     Active Substance: ADALIMUMAB
     Indication: Crohn^s disease
     Dosage: FORM STRENGTH: 40 MG
     Route: 058
     Dates: start: 20220616, end: 2023
  2. HUMIRA [Suspect]
     Active Substance: ADALIMUMAB
     Dosage: FORM STRENGTH: 40 MG
     Route: 058
     Dates: start: 202305, end: 20230921
  3. ENTYVIO [Concomitant]
     Active Substance: VEDOLIZUMAB
     Indication: Crohn^s disease
     Dates: start: 2023

REACTIONS (7)
  - Small intestine ulcer [Unknown]
  - Pain [Recovered/Resolved]
  - Crohn^s disease [Not Recovered/Not Resolved]
  - Groin pain [Unknown]
  - Discomfort [Unknown]
  - Asthenia [Unknown]
  - Gastrointestinal scarring [Unknown]

NARRATIVE: CASE EVENT DATE: 20230101
